FAERS Safety Report 18390449 (Version 1)
Quarter: 2020Q4

REPORT INFORMATION
  Report Type: Spontaneous
  Country: US (occurrence: US)
  Receive Date: 20201016
  Receipt Date: 20201016
  Transmission Date: 20210114
  Serious: No
  Sender: FDA-Public Use
  Company Number: US-TEVA-2020-US-1835678

PATIENT
  Age: 68 Year
  Sex: Female

DRUGS (7)
  1. MEMANTINE HCL [Concomitant]
     Active Substance: MEMANTINE
     Dosage: 10 MG
     Route: 048
  2. OXYBUTYNIN CHLORIDE ER TABLET EXTENDED RELEASE [Concomitant]
     Dosage: EXTENDED RELEASE, 24 HOURS, 15 MG
     Route: 048
  3. AUSTEDO [Suspect]
     Active Substance: DEUTETRABENAZINE
     Indication: TARDIVE DYSKINESIA
     Dosage: 12 MILLIGRAM DAILY;
     Route: 048
     Dates: start: 20200206
  4. AUSTEDO [Suspect]
     Active Substance: DEUTETRABENAZINE
     Dosage: 48 MILLIGRAM DAILY;
     Route: 048
  5. COVARYX HS ORAL TABLET [Concomitant]
     Dosage: 0.625 MG- 1.25 MG
     Route: 048
  6. MEGESTROL ACETATE. [Concomitant]
     Active Substance: MEGESTROL ACETATE
     Dosage: 20 MG
     Route: 048
  7. MECLIZINE HCL [Concomitant]
     Active Substance: MECLIZINE HYDROCHLORIDE

REACTIONS (2)
  - Defaecation disorder [Unknown]
  - Decreased appetite [Unknown]
